FAERS Safety Report 23268900 (Version 2)
Quarter: 2023Q4

REPORT INFORMATION
  Report Type: Report from Study
  Country: CA (occurrence: CA)
  Receive Date: 20231206
  Receipt Date: 20231211
  Transmission Date: 20240109
  Serious: Yes (Other)
  Sender: FDA-Public Use
  Company Number: CA-BAUSCH-BL-2023-015566

PATIENT
  Age: 45 Year
  Sex: Female

DRUGS (3)
  1. SILIQ [Suspect]
     Active Substance: BRODALUMAB
     Indication: Psoriasis
     Dosage: 210MG/1.5ML, INDUCTION WEEKLY
     Route: 058
     Dates: start: 20231013, end: 20231026
  2. SILIQ [Suspect]
     Active Substance: BRODALUMAB
     Dosage: 210MG/1.5ML, Q 2 WEEKS
     Route: 058
     Dates: start: 2023
  3. SANDOSTATIN [Concomitant]
     Active Substance: OCTREOTIDE ACETATE
     Indication: Product used for unknown indication

REACTIONS (8)
  - Psoriatic arthropathy [Unknown]
  - Dizziness [Unknown]
  - Fear of injection [Unknown]
  - Pain [Unknown]
  - Psoriasis [Recovered/Resolved]
  - Symptom recurrence [Recovered/Resolved]
  - Fatigue [Unknown]
  - Patient dissatisfaction with treatment [Unknown]

NARRATIVE: CASE EVENT DATE: 20230101
